FAERS Safety Report 17576754 (Version 3)
Quarter: 2021Q4

REPORT INFORMATION
  Report Type: Other
  Country: US (occurrence: US)
  Receive Date: 20200324
  Receipt Date: 20211221
  Transmission Date: 20220303
  Serious: No
  Sender: FDA-Public Use
  Company Number: US-ACORDA-ACO_164152_2020

PATIENT
  Sex: Male

DRUGS (5)
  1. INBRIJA [Suspect]
     Active Substance: LEVODOPA
     Indication: Parkinson^s disease
     Dosage: 2 CAPSULES (84 MG), PRN (NOT TO EXCEED 5 DOSES PER DAY)
  2. INBRIJA [Suspect]
     Active Substance: LEVODOPA
     Indication: On and off phenomenon
     Dosage: 1 DOSAGE FORM, FOUR TIMES DAILY, AS NEEDED
     Dates: start: 20210216
  3. PREDNISONE [Suspect]
     Active Substance: PREDNISONE
     Indication: Ill-defined disorder
     Dosage: UNK
     Route: 065
  4. CARBIDOPA AND LEVODOPA [Suspect]
     Active Substance: CARBIDOPA\LEVODOPA
     Indication: Product used for unknown indication
     Dosage: 1 TABLET, TID
     Route: 065
  5. CARBIDOPA [Concomitant]
     Active Substance: CARBIDOPA
     Indication: Product used for unknown indication
     Dosage: 25 MILLIGRAM, Q 8 HRS
     Route: 065

REACTIONS (8)
  - Fatigue [Unknown]
  - Ill-defined disorder [Unknown]
  - Gastric disorder [Unknown]
  - Prescribed underdose [Unknown]
  - Device occlusion [Unknown]
  - Product cleaning inadequate [Unknown]
  - Wrong technique in device usage process [Unknown]
  - Salivary hypersecretion [Unknown]
